FAERS Safety Report 24934920 (Version 2)
Quarter: 2025Q1

REPORT INFORMATION
  Report Type: Spontaneous
  Country: CN (occurrence: CN)
  Receive Date: 20250206
  Receipt Date: 20250218
  Transmission Date: 20250409
  Serious: Yes (Life-Threatening, Hospitalization, Other)
  Sender: ALKEM
  Company Number: None

PATIENT
  Age: 41 Month
  Sex: Female

DRUGS (2)
  1. MYCOPHENOLATE MOFETIL [Suspect]
     Active Substance: MYCOPHENOLATE MOFETIL
     Indication: Immunosuppressant drug therapy
     Dosage: 125 MILLIGRAM, BID (DISPERSIBLE TABLET)
     Route: 065
  2. TACROLIMUS [Suspect]
     Active Substance: TACROLIMUS
     Indication: Immunosuppressant drug therapy
     Dosage: 0.75 MILLIGRAM, QD (CAPSULES)
     Route: 065

REACTIONS (4)
  - Pneumatosis intestinalis [Recovering/Resolving]
  - Burkitt^s lymphoma [Recovering/Resolving]
  - Seizure [Recovering/Resolving]
  - Epstein-Barr virus associated lymphoproliferative disorder [Recovering/Resolving]
